FAERS Safety Report 8429556 (Version 5)
Quarter: 2014Q4

REPORT INFORMATION
  Report Type: Spontaneous
  Country: US (occurrence: None)
  Receive Date: 20120221
  Receipt Date: 20141113
  Transmission Date: 20150529
  Serious: Yes (Other)
  Sender: FDA-Public Use
  Company Number: JPI-P-019646

PATIENT
  Age: 59 Year
  Sex: Female

DRUGS (9)
  1. ALEVE (NAPROXEN SODIUM) [Concomitant]
  2. XYREM [Suspect]
     Active Substance: SODIUM OXYBATE
     Indication: NARCOLEPSY
     Dosage: 1.5 G, BID, ORAL
     Route: 048
     Dates: start: 20091208
  3. LOSARTAN (LOSARTAN) [Concomitant]
     Active Substance: LOSARTAN
  4. HYDROCHLOROTHIAZIDE (HYDROCHLOROTHIAZIDE) TABLET [Concomitant]
     Active Substance: HYDROCHLOROTHIAZIDE
  5. XYREM [Suspect]
     Active Substance: SODIUM OXYBATE
     Indication: CATAPLEXY
     Dosage: 1.5 G, BID, ORAL
     Route: 048
     Dates: start: 20091208
  6. XYREM [Suspect]
     Active Substance: SODIUM OXYBATE
     Indication: HYPERSOMNIA
     Dosage: 1.5 G, BID, ORAL
     Route: 048
     Dates: start: 20091208
  7. VITAMIN D3 [Concomitant]
     Active Substance: CHOLECALCIFEROL
  8. VENLAFAXINE HYDROCHLORIDE (VENLAFAXINE HYDROCHLORIDE) [Concomitant]
     Active Substance: VENLAFAXINE HYDROCHLORIDE
  9. ATENOLOL (ATENOLOL) [Concomitant]
     Active Substance: ATENOLOL

REACTIONS (4)
  - Condition aggravated [None]
  - Knee arthroplasty [None]
  - Hypertension [None]
  - Osteoporosis [None]

NARRATIVE: CASE EVENT DATE: 2014
